FAERS Safety Report 9718470 (Version 2)
Quarter: 2013Q4

REPORT INFORMATION
  Report Type: Spontaneous
  Country: US (occurrence: US)
  Receive Date: 20131127
  Receipt Date: 20131204
  Transmission Date: 20140711
  Serious: No
  Sender: FDA-Public Use
  Company Number: US-BAYER-2013-140335

PATIENT
  Age: 67 Year
  Sex: Male
  Weight: 90.7 kg

DRUGS (5)
  1. ALEVE CAPLET [Suspect]
     Indication: MYALGIA
     Dosage: 2 DF, BID
     Route: 048
     Dates: start: 201310
  2. ALEVE CAPLET [Suspect]
     Indication: ANTIINFLAMMATORY THERAPY
  3. ZIAC [Concomitant]
  4. BECLAZONE [Concomitant]
  5. MELOXICAM [Concomitant]

REACTIONS (3)
  - Drug ineffective [None]
  - Incorrect drug administration duration [None]
  - Extra dose administered [None]
